FAERS Safety Report 12831068 (Version 1)
Quarter: 2016Q4

REPORT INFORMATION
  Report Type: Spontaneous
  Country: DE (occurrence: DE)
  Receive Date: 20161007
  Receipt Date: 20161007
  Transmission Date: 20170207
  Serious: Yes (Life-Threatening)
  Sender: FDA-Public Use
  Company Number: DE-B.I. PHARMACEUTICALS,INC./RIDGEFIELD-2016-BI-58646DE

PATIENT
  Age: 87 Year
  Sex: Male
  Weight: 88 kg

DRUGS (7)
  1. AMLODIPIN [Concomitant]
     Active Substance: AMLODIPINE BESYLATE
     Indication: PRODUCT USED FOR UNKNOWN INDICATION
     Dosage: STRENGTH: 5MG
  2. METOPROLOL. [Concomitant]
     Active Substance: METOPROLOL
     Indication: PRODUCT USED FOR UNKNOWN INDICATION
  3. PANTOPRAZOL [Concomitant]
     Active Substance: PANTOPRAZOLE SODIUM
     Indication: PRODUCT USED FOR UNKNOWN INDICATION
  4. TRIAMTEREN HCT AL [Concomitant]
     Indication: PRODUCT USED FOR UNKNOWN INDICATION
     Dosage: DOSE PER APPLICATION: 0.5 NUMBER?POSOLOGY: 0.5-0-0
  5. TORASEMID [Concomitant]
     Active Substance: TORSEMIDE
     Indication: PRODUCT USED FOR UNKNOWN INDICATION
     Dosage: DAILY DOSE:3 NUMBERS?POSOLOGY: 2-1-0?STRENGTH: 10
  6. VALSARTAN. [Concomitant]
     Active Substance: VALSARTAN
     Dosage: STRENGTH: 160       DAILY DOSE AND DOSE PER APPLICATION: 1 NUMBER
  7. PRADAXA [Suspect]
     Active Substance: DABIGATRAN ETEXILATE MESYLATE
     Indication: ATRIAL FIBRILLATION
     Dosage: POSOLOGY: 2X110MG
     Route: 048
     Dates: start: 20160826

REACTIONS (5)
  - Pericardial effusion [Not Recovered/Not Resolved]
  - Haemoglobin decreased [Unknown]
  - Pericardial haemorrhage [Recovered/Resolved]
  - Pericarditis uraemic [Unknown]
  - Azotaemia [Recovered/Resolved]

NARRATIVE: CASE EVENT DATE: 20160826
